FAERS Safety Report 7553598-9 (Version None)
Quarter: 2011Q2

REPORT INFORMATION
  Report Type: 
  Country: None (occurrence: None)
  Receive Date: 20110617
  Receipt Date: 20110607
  Transmission Date: 20111010
  Serious: No
  Sender: FDA-Public Use
  Company Number: CA-JNJFOC-20110603309

PATIENT
  Age: 52 Year
  Sex: Female

DRUGS (1)
  1. DURAGESIC-100 [Suspect]
     Indication: FIBROMYALGIA
     Route: 062
     Dates: start: 20100101

REACTIONS (1)
  - WRONG TECHNIQUE IN DRUG USAGE PROCESS [None]
